FAERS Safety Report 16592741 (Version 3)
Quarter: 2020Q2

REPORT INFORMATION
  Report Type: Report from Study
  Country: MY (occurrence: MY)
  Receive Date: 20190718
  Receipt Date: 20200520
  Transmission Date: 20200713
  Serious: Yes (Death, Other)
  Sender: FDA-Public Use
  Company Number: MY-SEATTLE GENETICS-2019SGN02135

PATIENT
  Sex: Male

DRUGS (1)
  1. BRENTUXIMAB VEDOTIN [Suspect]
     Active Substance: BRENTUXIMAB VEDOTIN
     Indication: HODGKIN^S DISEASE
     Dosage: 50 MILLIGRAM
     Route: 042
     Dates: start: 20180801, end: 20190507

REACTIONS (3)
  - Disease progression [Fatal]
  - Sepsis [Fatal]
  - Drug ineffective [Unknown]
